FAERS Safety Report 5347046-7 (Version None)
Quarter: 2007Q2

REPORT INFORMATION
  Report Type: 
  Country: None (occurrence: None)
  Receive Date: 20070604
  Receipt Date: 20070523
  Transmission Date: 20071010
  Serious: Yes (Death)
  Sender: FDA-Public Use
  Company Number: B0472406A

PATIENT
  Age: 42 Year
  Sex: Male

DRUGS (11)
  1. CEFTAZIDIME SODIUM [Suspect]
     Indication: PROPHYLACTIC CHEMOTHERAPY
  2. ACYCLOVIR [Suspect]
     Indication: PROPHYLACTIC CHEMOTHERAPY
  3. AMIKACIN [Suspect]
     Indication: PROPHYLACTIC CHEMOTHERAPY
  4. FLUCONAZOLE [Suspect]
     Indication: PROPHYLACTIC CHEMOTHERAPY
  5. CYCLOPHOSPHAMIDE [Concomitant]
  6. IDARUBICIN HCL [Concomitant]
  7. VINCRISTINE [Concomitant]
  8. COLASPASE [Concomitant]
  9. DEXAMETHASONE 0.5MG TAB [Concomitant]
  10. METHOTREXATE [Concomitant]
  11. CYTARABINE [Concomitant]

REACTIONS (5)
  - ARTERIAL RUPTURE [None]
  - BRONCHOPULMONARY ASPERGILLOSIS [None]
  - HAEMOPTYSIS [None]
  - RESPIRATORY FAILURE [None]
  - VENOUS HAEMORRHAGE [None]
